FAERS Safety Report 6262148-9 (Version None)
Quarter: 2009Q3

REPORT INFORMATION
  Report Type: 
  Country: None (occurrence: None)
  Receive Date: 20090709
  Receipt Date: 20090706
  Transmission Date: 20100115
  Serious: Yes (Other)
  Sender: FDA-Public Use
  Company Number: JP-BAYER-200911869BYL

PATIENT
  Age: 56 Year
  Sex: Male
  Weight: 67 kg

DRUGS (26)
  1. NEXAVAR [Suspect]
     Indication: RENAL CELL CARCINOMA STAGE IV
     Dosage: UNIT DOSE: 200 MG
     Route: 048
     Dates: start: 20081215
  2. NEXAVAR [Suspect]
     Dosage: UNIT DOSE: 200 MG
     Route: 048
     Dates: start: 20090207, end: 20090216
  3. NEXAVAR [Suspect]
     Dosage: UNIT DOSE: 200 MG
     Route: 048
     Dates: start: 20090217, end: 20090522
  4. NORVASC [Concomitant]
     Dosage: TOTAL DAILY DOSE: 10 MG
     Route: 048
     Dates: start: 19950101
  5. LASIX [Concomitant]
     Dosage: TOTAL DAILY DOSE: 40 MG
     Route: 048
     Dates: start: 20081007
  6. LASIX [Concomitant]
     Route: 048
     Dates: start: 20090414
  7. TAKEPRON [Concomitant]
     Indication: PROPHYLAXIS
     Dosage: TOTAL DAILY DOSE: 30 MBQ
     Route: 048
     Dates: start: 20081014
  8. MUCOSTA [Concomitant]
     Indication: PROPHYLAXIS
     Dosage: TOTAL DAILY DOSE: 200 MG
     Route: 048
     Dates: start: 20081014
  9. MUCOSOLVAN [Concomitant]
     Dosage: TOTAL DAILY DOSE: 45 MG
     Route: 048
     Dates: start: 20081027
  10. MICARDIS [Concomitant]
     Dosage: TOTAL DAILY DOSE: 80 MG
     Route: 048
     Dates: start: 20081226
  11. MICARDIS [Concomitant]
     Dosage: TOTAL DAILY DOSE: 40 MG
     Route: 048
     Dates: start: 20081029, end: 20081225
  12. ESPO [Concomitant]
     Dosage: TOTAL DAILY DOSE: 6 KIU
     Route: 058
     Dates: start: 20081215, end: 20081215
  13. ESPO [Concomitant]
     Dosage: TOTAL DAILY DOSE: 12 KIU
     Route: 058
     Dates: start: 20090217, end: 20090217
  14. ESPO [Concomitant]
     Dosage: TOTAL DAILY DOSE: 12 KIU
     Route: 058
     Dates: start: 20090303, end: 20090303
  15. ESPO [Concomitant]
     Dosage: TOTAL DAILY DOSE: 12 KIU
     Route: 058
     Dates: start: 20090317, end: 20090317
  16. ESPO [Concomitant]
     Dosage: TOTAL DAILY DOSE: 6 KIU
     Route: 058
     Dates: start: 20090120, end: 20090120
  17. ESPO [Concomitant]
     Dosage: TOTAL DAILY DOSE: 6 KIU
     Route: 058
     Dates: start: 20090106, end: 20090106
  18. ESPO [Concomitant]
     Dosage: TOTAL DAILY DOSE: 6 KIU
     Route: 058
     Dates: start: 20090203, end: 20090203
  19. UREPEARL [Concomitant]
     Indication: PROPHYLAXIS
     Route: 061
     Dates: start: 20081226
  20. FESIN [Concomitant]
     Route: 042
     Dates: start: 20090203, end: 20090203
  21. FESIN [Concomitant]
     Route: 042
     Dates: start: 20090317, end: 20090317
  22. FERROMIA [Concomitant]
     Route: 048
     Dates: start: 20090303
  23. TWINPAL [Concomitant]
     Indication: NUTRITIONAL SUPPORT
     Dosage: UNIT DOSE: 500 ML
     Route: 042
     Dates: start: 20090522, end: 20090525
  24. DEXTROSE 5% [Concomitant]
     Indication: NUTRITIONAL SUPPORT
     Dosage: UNIT DOSE: 50 %
     Route: 042
     Dates: start: 20090522, end: 20090525
  25. SOLDEM 1 [Concomitant]
     Indication: FLUID REPLACEMENT
     Dosage: UNIT DOSE: 500 ML
     Route: 042
     Dates: start: 20090522, end: 20090527
  26. NEOLAMIN 3B [Concomitant]
     Indication: FLUID REPLACEMENT
     Route: 042
     Dates: start: 20090522, end: 20090527

REACTIONS (8)
  - ANAEMIA [None]
  - BLOOD URIC ACID INCREASED [None]
  - DIARRHOEA [None]
  - HYPERTENSION [None]
  - HYPOALBUMINAEMIA [None]
  - PAIN [None]
  - PALMAR-PLANTAR ERYTHRODYSAESTHESIA SYNDROME [None]
  - PYREXIA [None]
